FAERS Safety Report 25273270 (Version 1)
Quarter: 2025Q2

REPORT INFORMATION
  Report Type: Spontaneous
  Country: US (occurrence: US)
  Receive Date: 20250506
  Receipt Date: 20250506
  Transmission Date: 20250717
  Serious: No
  Sender: AMNEAL
  Company Number: US-AMNEAL PHARMACEUTICALS-2024-AMRX-02290

PATIENT
  Sex: Male
  Weight: 14.376 kg

DRUGS (1)
  1. VIGABATRIN [Suspect]
     Active Substance: VIGABATRIN
     Indication: Product used for unknown indication
     Dosage: 750 MG TWICE A DAY
     Route: 048

REACTIONS (2)
  - Withdrawal syndrome [Unknown]
  - Product dose omission issue [Unknown]
